FAERS Safety Report 6258635-X (Version None)
Quarter: 2009Q3

REPORT INFORMATION
  Report Type: 
  Country: None (occurrence: None)
  Receive Date: 20090707
  Receipt Date: 20090626
  Transmission Date: 20100115
  Serious: Yes (Hospitalization)
  Sender: FDA-Public Use
  Company Number: IT-ASTRAZENECA-2009SE03565

PATIENT
  Age: 76 Year
  Sex: Male

DRUGS (1)
  1. SIMESTAT [Suspect]
     Indication: HYPERCHOLESTEROLAEMIA
     Route: 048
     Dates: start: 20070101, end: 20070930

REACTIONS (3)
  - ASTHENIA [None]
  - DYSARTHRIA [None]
  - MOTOR NEURONE DISEASE [None]
